FAERS Safety Report 8387418-X (Version None)
Quarter: 2012Q2

REPORT INFORMATION
  Report Type: 
  Country: None (occurrence: None)
  Receive Date: 20120525
  Receipt Date: 20120521
  Transmission Date: 20120825
  Serious: Yes (Hospitalization, Other)
  Sender: FDA-Public Use
  Company Number: GB-PFIZER INC-2005070694

PATIENT
  Age: 70 Year
  Sex: Female
  Weight: 91.6 kg

DRUGS (8)
  1. BENDROFLUAZIDE [Concomitant]
     Dosage: UNK
     Dates: start: 20020206
  2. PRAZOSIN [Concomitant]
     Indication: ESSENTIAL HYPERTENSION
     Dosage: UNK
     Dates: start: 19771012
  3. SOTALOL [Concomitant]
     Indication: ARRHYTHMIA
     Dosage: UNK
     Dates: start: 19801210
  4. SALBUTAMOL [Concomitant]
     Indication: ASTHMA
     Dosage: UNK
     Dates: start: 20020306
  5. ENALAPRIL [Concomitant]
     Indication: ESSENTIAL HYPERTENSION
     Dosage: UNK
     Dates: start: 20011219
  6. SIMVASTATIN [Concomitant]
     Indication: HYPERCHOLESTEROLAEMIA
     Dosage: UNK
     Dates: start: 19981106
  7. SOMATROPIN RDNA [Suspect]
     Indication: HYPOPITUITARISM
     Dosage: 0.3 MG, 1X/DAY
     Route: 058
     Dates: start: 20030701, end: 20050429
  8. HYDROCORTISONE [Concomitant]
     Indication: BLOOD CORTICOTROPHIN DECREASED
     Dosage: UNK
     Dates: start: 20001221

REACTIONS (3)
  - RECTAL HAEMORRHAGE [None]
  - WEIGHT DECREASED [None]
  - GASTROINTESTINAL CARCINOMA [None]
